FAERS Safety Report 10854308 (Version 1)
Quarter: 2015Q1

REPORT INFORMATION
  Report Type: Spontaneous
  Country: FR (occurrence: None)
  Receive Date: 20150218
  Receipt Date: 20150218
  Transmission Date: 20150721
  Serious: Yes (Hospitalization)
  Sender: FDA-Public Use
  Company Number: FR-2015-0462

PATIENT
  Age: 1 Day
  Sex: Female
  Weight: 3.06 kg

DRUGS (2)
  1. CISPLATIN. [Suspect]
     Active Substance: CISPLATIN
     Indication: LUNG CARCINOMA CELL TYPE UNSPECIFIED STAGE 0
     Dosage: 75 MG/M2, TOTAL DOSE 150 MG AT DAY 1, CYCLICAL, 4 COURSES
     Dates: start: 2012, end: 201303
  2. NAVELBINE [Suspect]
     Active Substance: VINORELBINE TARTRATE
     Indication: LUNG CARCINOMA CELL TYPE UNSPECIFIED STAGE 0
     Dosage: 50 MG/M2, TOTAL DOSE 60 MG, DAY 1 AND DAY 8, CYCLICAL, 4 COURSES, ?
     Dates: start: 2012, end: 20130405

REACTIONS (4)
  - Diaphragmatic hernia [None]
  - Congenital anomaly [None]
  - Weight gain poor [None]
  - Exposure via father [None]

NARRATIVE: CASE EVENT DATE: 2014
